FAERS Safety Report 6071222-1 (Version None)
Quarter: 2009Q1

REPORT INFORMATION
  Report Type: 
  Country: None (occurrence: None)
  Receive Date: 20090209
  Receipt Date: 20090129
  Transmission Date: 20090719
  Serious: Yes (Other)
  Sender: FDA-Public Use
  Company Number: FR-ELI_LILLY_AND_COMPANY-FR200901005424

PATIENT
  Sex: Male

DRUGS (1)
  1. CYMBALTA [Suspect]
     Dosage: 1 D/F, UNK
     Route: 048

REACTIONS (3)
  - HEPATOCELLULAR INJURY [None]
  - OEDEMA PERIPHERAL [None]
  - WEIGHT INCREASED [None]
